FAERS Safety Report 9550404 (Version 1)
Quarter: 2013Q3

REPORT INFORMATION
  Report Type: Spontaneous
  Country: US (occurrence: US)
  Receive Date: 20130924
  Receipt Date: 20130924
  Transmission Date: 20140515
  Serious: No
  Sender: FDA-Public Use
  Company Number: US-SANOFI-AVENTIS-2013SA076235

PATIENT
  Age: 59 Year
  Sex: Female
  Weight: 43.09 kg

DRUGS (4)
  1. AUBAGIO [Suspect]
     Indication: MULTIPLE SCLEROSIS
     Route: 065
     Dates: start: 20130330, end: 20130624
  2. GABAPENTIN [Concomitant]
     Indication: PAIN IN EXTREMITY
     Dates: start: 1999
  3. TIZANIDINE [Concomitant]
     Indication: MUSCLE SPASMS
     Dates: start: 2002
  4. DIAZEPAM [Concomitant]
     Indication: SLEEP DISORDER
     Dates: start: 2008

REACTIONS (3)
  - Toothache [Recovered/Resolved]
  - Fatigue [Unknown]
  - Diarrhoea [Not Recovered/Not Resolved]
